FAERS Safety Report 18771398 (Version 1)
Quarter: 2021Q1

REPORT INFORMATION
  Report Type: Spontaneous
  Country: CN (occurrence: CN)
  Receive Date: 20210121
  Receipt Date: 20210121
  Transmission Date: 20210419
  Serious: Yes (Hospitalization)
  Sender: FDA-Public Use
  Company Number: CN-BAYER-2021-029504

PATIENT
  Age: 72 Year
  Sex: Male
  Weight: 60 kg

DRUGS (3)
  1. ULTRAVIST [Suspect]
     Active Substance: IOPROMIDE
     Indication: SCAN WITH CONTRAST
  2. NORMAL SALINE [Concomitant]
     Active Substance: SODIUM CHLORIDE
     Dosage: 50 ML
     Dates: start: 20210115
  3. ULTRAVIST [Suspect]
     Active Substance: IOPROMIDE
     Indication: ANGIOGRAM
     Dosage: 40 ML, ONCE
     Route: 042
     Dates: start: 20210115, end: 20210115

REACTIONS (7)
  - Carotid pulse abnormal [Recovering/Resolving]
  - Dizziness [Recovering/Resolving]
  - Cyanosis [Recovering/Resolving]
  - Ventricular fibrillation [Recovering/Resolving]
  - Syncope [Recovering/Resolving]
  - Unresponsive to stimuli [Recovering/Resolving]
  - Dysphoria [Recovering/Resolving]

NARRATIVE: CASE EVENT DATE: 20210115
